FAERS Safety Report 11102114 (Version 2)
Quarter: 2015Q2

REPORT INFORMATION
  Report Type: Report from Study
  Country: AU (occurrence: AU)
  Receive Date: 20150511
  Receipt Date: 20150513
  Transmission Date: 20150821
  Serious: Yes (Other)
  Sender: FDA-Public Use
  Company Number: AU-ROCHE-1571672

PATIENT
  Sex: Male

DRUGS (1)
  1. ACTEMRA [Suspect]
     Active Substance: TOCILIZUMAB
     Indication: RHEUMATOID ARTHRITIS
     Route: 042
     Dates: start: 20140307

REACTIONS (4)
  - White blood cell count abnormal [Recovered/Resolved]
  - Hepatic function abnormal [Recovered/Resolved]
  - Blood iron abnormal [Recovered/Resolved]
  - Eye infection [Recovered/Resolved]
